FAERS Safety Report 24595686 (Version 3)
Quarter: 2024Q4

REPORT INFORMATION
  Report Type: Spontaneous
  Country: US (occurrence: US)
  Receive Date: 20241109
  Receipt Date: 20241125
  Transmission Date: 20250114
  Serious: No
  Sender: ARGENX BVBA
  Company Number: US-ARGENX-2024-ARGX-US009764

PATIENT

DRUGS (1)
  1. VYVGART [Suspect]
     Active Substance: EFGARTIGIMOD ALFA-FCAB
     Indication: Myasthenia gravis
     Dosage: UNK, 4 WEEKS ON, 8 WEEKS OFF
     Route: 042
     Dates: start: 20230605

REACTIONS (1)
  - Myasthenia gravis [Recovering/Resolving]
